FAERS Safety Report 9282834 (Version 2)
Quarter: 2013Q2

REPORT INFORMATION
  Report Type: Spontaneous
  Country: AT (occurrence: AT)
  Receive Date: 20130510
  Receipt Date: 20130620
  Transmission Date: 20140414
  Serious: Yes (Disabling)
  Sender: FDA-Public Use
  Company Number: PHHY2013AT045850

PATIENT
  Age: 40 Year
  Sex: Female

DRUGS (1)
  1. GILENYA [Suspect]
     Indication: RELAPSING-REMITTING MULTIPLE SCLEROSIS
     Dosage: 0.5 MG, QD
     Route: 048
     Dates: start: 20121107, end: 20130501

REACTIONS (6)
  - Central nervous system lesion [Recovered/Resolved with Sequelae]
  - Hemiparesis [Unknown]
  - Cognitive disorder [Unknown]
  - Personality change [Unknown]
  - Nervous system disorder [Unknown]
  - Lymphocyte count decreased [Unknown]
